APPROVED DRUG PRODUCT: PROCHLORPERAZINE MALEATE
Active Ingredient: PROCHLORPERAZINE MALEATE
Strength: EQ 5MG BASE
Dosage Form/Route: TABLET;ORAL
Application: A040185 | Product #002
Applicant: PHARMOBEDIENT CONSULTING LLC
Approved: Oct 28, 1996 | RLD: No | RS: No | Type: DISCN